FAERS Safety Report 4976792-X (Version None)
Quarter: 2006Q2

REPORT INFORMATION
  Report Type: 
  Country: None (occurrence: None)
  Receive Date: 20060419
  Receipt Date: 20060410
  Transmission Date: 20061013
  Serious: Yes (Other)
  Sender: FDA-Public Use
  Company Number: PHBS2006NL05363

PATIENT
  Age: 59 Year
  Sex: Male

DRUGS (2)
  1. RIVOTRIL [Concomitant]
     Dosage: 0.5 MG, QD
     Dates: start: 19980520
  2. RITALIN [Suspect]
     Dosage: 10 MG, TID
     Route: 048
     Dates: start: 20060329

REACTIONS (1)
  - SYNCOPE [None]
